FAERS Safety Report 18705773 (Version 1)
Quarter: 2021Q1

REPORT INFORMATION
  Report Type: Spontaneous
  Country: US (occurrence: US)
  Receive Date: 20210105
  Receipt Date: 20210105
  Transmission Date: 20210419
  Serious: Yes (Hospitalization)
  Sender: FDA-Public Use
  Company Number: None

PATIENT
  Age: 70 Year
  Sex: Male

DRUGS (11)
  1. LOSARTAN. [Concomitant]
     Active Substance: LOSARTAN
  2. PROCHLORPERAZINE. [Concomitant]
     Active Substance: PROCHLORPERAZINE
  3. VALACYCLOVIR [Concomitant]
     Active Substance: VALACYCLOVIR HYDROCHLORIDE
  4. SUTENT [Suspect]
     Active Substance: SUNITINIB MALATE
     Indication: RENAL CANCER
     Route: 048
  5. LORAZEPAM. [Concomitant]
     Active Substance: LORAZEPAM
  6. FLUTICASONE. [Concomitant]
     Active Substance: FLUTICASONE
  7. MELATONIN [Concomitant]
     Active Substance: MELATONIN
  8. PROAIR HFA [Concomitant]
     Active Substance: ALBUTEROL SULFATE
  9. TRAMADOL. [Concomitant]
     Active Substance: TRAMADOL
  10. ASMANEX [Concomitant]
     Active Substance: MOMETASONE FUROATE
  11. POTASSIUM [Concomitant]
     Active Substance: POTASSIUM

REACTIONS (2)
  - Therapy interrupted [None]
  - SARS-CoV-2 test positive [None]

NARRATIVE: CASE EVENT DATE: 20210105
